FAERS Safety Report 7800078-9 (Version None)
Quarter: 2011Q4

REPORT INFORMATION
  Report Type: 
  Country: None (occurrence: None)
  Receive Date: 20111004
  Receipt Date: 20110927
  Transmission Date: 20120403
  Serious: Yes (Life-Threatening)
  Sender: FDA-Public Use
  Company Number: WAES 1109USA03330

PATIENT
  Age: 72 Year
  Sex: Female

DRUGS (8)
  1. INSULIN [Concomitant]
  2. METFORMIN HYDROCHLORIDE [Concomitant]
  3. LOSARTAN POTASSIUM [Concomitant]
  4. ASPIRIN [Concomitant]
  5. VYTORIN [Suspect]
     Indication: ACUTE CORONARY SYNDROME
     Dosage: 10-40 MG/DAILY
     Route: 048
     Dates: start: 20091008
  6. AMLODIPINE [Concomitant]
  7. PLACEBO [Suspect]
     Indication: ACUTE CORONARY SYNDROME
     Route: 048
     Dates: start: 20091008
  8. METOPROLOL TARTRATE [Concomitant]

REACTIONS (2)
  - BREAST CANCER FEMALE [None]
  - METASTASES TO LYMPH NODES [None]
